FAERS Safety Report 4474295-2 (Version None)
Quarter: 2004Q4

REPORT INFORMATION
  Report Type: 
  Country: None (occurrence: None)
  Receive Date: 20041014
  Receipt Date: 20041005
  Transmission Date: 20050328
  Serious: Yes (Life-Threatening)
  Sender: FDA-Public Use
  Company Number: IT-ROCHE-382261

PATIENT
  Age: 79 Year
  Sex: Female

DRUGS (5)
  1. ROCEPHIN [Suspect]
     Route: 030
     Dates: start: 20040927, end: 20041001
  2. SEROQUEL [Concomitant]
     Route: 048
  3. SEROPRAM [Concomitant]
     Route: 048
  4. EXELON [Concomitant]
  5. STILNOX [Concomitant]
     Dosage: 1.5 DOSE FORM ONCE DAILY
     Route: 048

REACTIONS (7)
  - ANAEMIA [None]
  - HAEMORRHAGE [None]
  - MOUTH HAEMORRHAGE [None]
  - PETECHIAE [None]
  - RECTAL HAEMORRHAGE [None]
  - THROMBOCYTOPENIA [None]
  - VAGINAL HAEMORRHAGE [None]
